FAERS Safety Report 23269871 (Version 1)
Quarter: 2023Q4

REPORT INFORMATION
  Report Type: Spontaneous
  Country: US (occurrence: US)
  Receive Date: 20231207
  Receipt Date: 20231207
  Transmission Date: 20240110
  Serious: No
  Sender: FDA-Public Use
  Company Number: US-002147023-NVSC2022US244854

PATIENT
  Sex: Male

DRUGS (1)
  1. ALBUTEROL SULFATE [Suspect]
     Active Substance: ALBUTEROL SULFATE
     Indication: Product used for unknown indication
     Dosage: UNK UNK, BID (MORNING AND NIGHT) (ALBUTEROL SULFATE  INHALATION AEROSOL)
     Route: 055

REACTIONS (2)
  - Incorrect dose administered [Unknown]
  - Device delivery system issue [Unknown]
